FAERS Safety Report 9177856 (Version 3)
Quarter: 2013Q2

REPORT INFORMATION
  Report Type: Spontaneous
  Country: US (occurrence: US)
  Receive Date: 20121011
  Receipt Date: 20130416
  Transmission Date: 20140414
  Serious: Yes (Death, Congenital Anomaly, Other)
  Sender: FDA-Public Use
  Company Number: US-RB-045375-12

PATIENT
  Sex: Male

DRUGS (12)
  1. SUBOXONE FILM [Suspect]
     Indication: DRUG DEPENDENCE
     Dosage: SUBOXONE FILM; DOSING DETAILS UNKNOWN
     Route: 064
     Dates: start: 201202, end: 201206
  2. SUBUTEX [Suspect]
     Indication: DRUG DEPENDENCE
     Dosage: DOSING DETAILS UNKNOWN
     Route: 064
     Dates: start: 201206, end: 201207
  3. UNKNOWN ANTIBIOTIC [Suspect]
     Indication: KIDNEY INFECTION
     Dosage: DOSING DETAILS UNKNOWN
     Route: 064
     Dates: start: 201204, end: 2012
  4. UNKNOWN ANTIBIOTIC [Suspect]
     Indication: INFECTION
     Dosage: DOSING DETAILS UNKNOWN
     Route: 064
     Dates: start: 2012, end: 2012
  5. UNKNOWN ANTIBIOTIC [Suspect]
     Indication: URINARY TRACT INFECTION
     Dosage: DOSING DETAILS UNKNOWN
     Route: 064
     Dates: start: 2012, end: 20120921
  6. UNKNOWN ANESTHESIA [Suspect]
     Indication: APPENDICECTOMY
     Dosage: DOSING DETAILS UNKNOWN
     Route: 064
     Dates: start: 201204, end: 201204
  7. UNKNOWN PAIN MEDICATION [Suspect]
     Indication: PROCEDURAL PAIN
     Dosage: DOSING DETAILS UNKNOWN
     Route: 064
     Dates: start: 201204, end: 2012
  8. UNKNOWN NUCLEAR DRUG [Suspect]
     Indication: DIAGNOSTIC PROCEDURE
     Dosage: DOSING DETAILS UNKNOWN
     Route: 064
     Dates: start: 2012, end: 2012
  9. CIGARETTE EXPOSURE [Suspect]
     Indication: TOBACCO USER
     Dosage: 10 CIGARETTES DAILY
     Route: 064
     Dates: start: 201202, end: 20120921
  10. IRON SUPPLEMENT [Suspect]
     Indication: ANAEMIA
     Dosage: DOSING DETAILS UNKNOWN
     Route: 064
     Dates: start: 2012, end: 20120921
  11. PRENATAL VITAMINS [Concomitant]
     Indication: PREGNANCY
     Dosage: DOSING DETAILS NOT PROVIDED
     Route: 064
  12. ANTIBIOTICS [Concomitant]
     Indication: PRODUCT USED FOR UNKNOWN INDICATION
     Dosage: DOSING DETAILS NOT PROVIDED
     Route: 064

REACTIONS (10)
  - Brain malformation [Fatal]
  - Oesophageal atresia [Fatal]
  - Respiratory tract malformation [Fatal]
  - Hydrocephalus [Fatal]
  - Dysphagia [Fatal]
  - Talipes [Fatal]
  - Congenital knee deformity [Fatal]
  - Micrognathia [Fatal]
  - Meconium in amniotic fluid [Recovered/Resolved]
  - Foetal exposure during pregnancy [Recovered/Resolved]
